FAERS Safety Report 9098563 (Version 2)
Quarter: 2013Q4

REPORT INFORMATION
  Report Type: Spontaneous
  Country: None (occurrence: GB)
  Receive Date: 20130214
  Receipt Date: 20131011
  Transmission Date: 20140711
  Serious: Yes (Other)
  Sender: FDA-Public Use
  Company Number: GB-WATSON-2013-02230

PATIENT
  Age: 70 Year
  Sex: Female

DRUGS (6)
  1. SIMVASTATIN (UNKNOWN) [Suspect]
     Indication: HYPERCHOLESTEROLAEMIA
     Dosage: 40 MG, DAILY  AT NIGHT.
     Route: 048
     Dates: start: 20130116, end: 20130117
  2. PARACETAMOL [Concomitant]
     Indication: PAIN
     Dosage: ONGOING
     Route: 048
     Dates: start: 20130109
  3. ASPIRIN [Concomitant]
     Indication: PRODUCT USED FOR UNKNOWN INDICATION
     Dosage: 75 MG, UNK
     Route: 048
  4. BENDROFLUMETHIAZIDE [Concomitant]
     Indication: HYPERTENSION
     Dosage: 2.5 MG, UNK
     Route: 048
  5. AMOXICILLIN [Concomitant]
     Indication: LOWER RESPIRATORY TRACT INFECTION
     Dosage: ONGOING
     Route: 048
     Dates: start: 20130113
  6. CLEXANE [Concomitant]
     Indication: THROMBOSIS PROPHYLAXIS
     Dosage: ONGOING
     Route: 058
     Dates: start: 20130109

REACTIONS (2)
  - Rash [Recovering/Resolving]
  - Skin exfoliation [Recovering/Resolving]
